FAERS Safety Report 12977070 (Version 3)
Quarter: 2017Q2

REPORT INFORMATION
  Report Type: Spontaneous
  Country: ES (occurrence: ES)
  Receive Date: 20161128
  Receipt Date: 20170518
  Transmission Date: 20170830
  Serious: Yes (Hospitalization, Other)
  Sender: FDA-Public Use
  Company Number: ES-AMGEN-ESPSP2016166404

PATIENT
  Age: 90 Year
  Sex: Female
  Weight: 50 kg

DRUGS (2)
  1. PROLIA [Suspect]
     Active Substance: DENOSUMAB
     Indication: OSTEOPOROTIC FRACTURE
  2. PROLIA [Suspect]
     Active Substance: DENOSUMAB
     Indication: OSTEOPOROSIS POSTMENOPAUSAL
     Dosage: 60 MG, Q6MO
     Route: 058
     Dates: start: 20130807, end: 20160807

REACTIONS (5)
  - Subcutaneous abscess [Not Recovered/Not Resolved]
  - Otitis externa [Recovered/Resolved]
  - Ear swelling [Unknown]
  - Fistula discharge [Unknown]
  - Chondritis [Recovering/Resolving]

NARRATIVE: CASE EVENT DATE: 201608
